FAERS Safety Report 15303776 (Version 1)
Quarter: 2018Q3

REPORT INFORMATION
  Report Type: Report from Study
  Country: US (occurrence: US)
  Receive Date: 20180821
  Receipt Date: 20180821
  Transmission Date: 20181010
  Serious: No
  Sender: FDA-Public Use
  Company Number: US-AMGEN-USASL2018086926

PATIENT
  Age: 74 Year
  Sex: Female

DRUGS (7)
  1. ALEVE [Concomitant]
     Active Substance: NAPROXEN SODIUM
     Indication: MIGRAINE
     Dosage: UNK
  2. ZOFRAN [Concomitant]
     Active Substance: ONDANSETRON HYDROCHLORIDE
     Indication: MIGRAINE
  3. AIMOVIG [Suspect]
     Active Substance: ERENUMAB-AOOE
     Indication: MIGRAINE PROPHYLAXIS
     Dosage: 140 MG, QMO
     Route: 065
     Dates: start: 20180531
  4. ADVIL [Concomitant]
     Active Substance: IBUPROFEN
     Indication: ARTHRITIS
  5. CRESTOR [Suspect]
     Active Substance: ROSUVASTATIN CALCIUM
     Indication: BLOOD CHOLESTEROL ABNORMAL
     Dosage: UNK
     Route: 065
     Dates: end: 2018
  6. ADVIL [Concomitant]
     Active Substance: IBUPROFEN
     Indication: TENSION HEADACHE
     Dosage: 200 MG, AS NECESSARY, 2?3 TIMES A DAY
  7. ZOFRAN [Concomitant]
     Active Substance: ONDANSETRON HYDROCHLORIDE
     Indication: NAUSEA
     Dosage: UNK

REACTIONS (6)
  - Vomiting projectile [Recovered/Resolved]
  - Dyspnoea [Not Recovered/Not Resolved]
  - Arthritis [Recovering/Resolving]
  - Muscle spasms [Unknown]
  - Constipation [Not Recovered/Not Resolved]
  - Diarrhoea [Not Recovered/Not Resolved]

NARRATIVE: CASE EVENT DATE: 2018
